FAERS Safety Report 5648799-0 (Version None)
Quarter: 2008Q1

REPORT INFORMATION
  Report Type: 
  Country: None (occurrence: None)
  Receive Date: 20080131
  Receipt Date: 20071205
  Transmission Date: 20080703
  Serious: No
  Sender: FDA-Public Use
  Company Number: US200712001187

PATIENT
  Age: 58 Year
  Sex: Female
  Weight: 74.8 kg

DRUGS (3)
  1. BYETTA [Suspect]
     Indication: BLOOD INSULIN INCREASED
     Dosage: 5 UG, 2/D, SUBCUTANEOUS
     Route: 058
     Dates: end: 20070101
  2. BYETTA [Suspect]
     Indication: BLOOD INSULIN INCREASED
     Dosage: 5 UG, 2/D, SUBCUTANEOUS
     Route: 058
     Dates: start: 20071114
  3. PHENTERMINE [Concomitant]

REACTIONS (4)
  - ACCIDENTAL OVERDOSE [None]
  - ERUCTATION [None]
  - INCORRECT DOSE ADMINISTERED [None]
  - NAUSEA [None]
